FAERS Safety Report 23277947 (Version 1)
Quarter: 2023Q4

REPORT INFORMATION
  Report Type: Spontaneous
  Country: US (occurrence: None)
  Receive Date: 20231208
  Receipt Date: 20231208
  Transmission Date: 20240109
  Serious: Yes (Life-Threatening, Hospitalization, Other)
  Sender: FDA-Public Use
  Company Number: 2023A277998

PATIENT
  Age: 16 Year
  Sex: Female

DRUGS (13)
  1. QUETIAPINE [Suspect]
     Active Substance: QUETIAPINE
     Indication: Major depression
     Dosage: INGESTION OF 40 PILLS
  2. QUETIAPINE [Suspect]
     Active Substance: QUETIAPINE
     Indication: Major depression
     Route: 048
  3. QUETIAPINE [Suspect]
     Active Substance: QUETIAPINE
     Indication: Major depression
     Route: 048
  4. QUETIAPINE [Suspect]
     Active Substance: QUETIAPINE
     Indication: Major depression
     Route: 048
  5. QUETIAPINE [Suspect]
     Active Substance: QUETIAPINE
     Indication: Major depression
     Route: 048
  6. QUETIAPINE [Suspect]
     Active Substance: QUETIAPINE
     Indication: Major depression
     Route: 048
  7. QUETIAPINE [Suspect]
     Active Substance: QUETIAPINE
     Indication: Major depression
     Route: 048
  8. QUETIAPINE [Suspect]
     Active Substance: QUETIAPINE
     Indication: Major depression
     Route: 048
  9. LISINOPRIL [Suspect]
     Active Substance: LISINOPRIL
     Indication: Major depression
     Dosage: INGESTION OF 20 PILLS
     Route: 048
  10. METHYLPHENIDATE [Suspect]
     Active Substance: METHYLPHENIDATE
     Dosage: INGESTION OF 40 PILLS
     Route: 048
  11. BUPROPION [Suspect]
     Active Substance: BUPROPION
     Dosage: INGESTION OF 40 PILLS
     Route: 048
  12. BUPROPION [Suspect]
     Active Substance: BUPROPION
     Route: 048
  13. BUPROPION [Suspect]
     Active Substance: BUPROPION
     Route: 048

REACTIONS (6)
  - Overdose [Unknown]
  - Suicide attempt [Unknown]
  - Mental disorder [Unknown]
  - Vision blurred [Unknown]
  - Suicidal ideation [Unknown]
  - Anxiety [Unknown]
